FAERS Safety Report 21646402 (Version 1)
Quarter: 2022Q4

REPORT INFORMATION
  Report Type: Spontaneous
  Country: FR (occurrence: FR)
  Receive Date: 20221126
  Receipt Date: 20221126
  Transmission Date: 20230113
  Serious: Yes (Hospitalization)
  Sender: FDA-Public Use
  Company Number: None

PATIENT
  Age: 63 Year
  Sex: Female

DRUGS (3)
  1. OXALIPLATIN [Suspect]
     Active Substance: OXALIPLATIN
     Indication: Rectal adenocarcinoma
     Dosage: STRENGTH: 5 MG/ML, BY TREATMENT
     Dates: start: 20220720
  2. BEVACIZUMAB [Concomitant]
     Active Substance: BEVACIZUMAB
     Indication: Rectal adenocarcinoma
     Dates: start: 20220720
  3. CAPECITABINE [Concomitant]
     Active Substance: CAPECITABINE
     Indication: Rectal adenocarcinoma
     Dates: start: 20220720

REACTIONS (2)
  - Oropharyngeal discomfort [Recovering/Resolving]
  - Hypertension [Recovering/Resolving]

NARRATIVE: CASE EVENT DATE: 20220720
